FAERS Safety Report 21667971 (Version 1)
Quarter: 2022Q4

REPORT INFORMATION
  Report Type: Spontaneous
  Country: US (occurrence: None)
  Receive Date: 20221130
  Receipt Date: 20221130
  Transmission Date: 20230113
  Serious: Yes (Hospitalization, Other)
  Sender: FDA-Public Use
  Company Number: None

PATIENT
  Age: 57 Year
  Sex: Male
  Weight: 63 kg

DRUGS (4)
  1. PALIPERIDONE [Suspect]
     Active Substance: PALIPERIDONE
     Indication: Schizoaffective disorder
     Dosage: FREQUENCY : DAILY;?
     Route: 048
     Dates: start: 20220726, end: 20220801
  2. GLIPIZIDE [Concomitant]
     Active Substance: GLIPIZIDE
  3. DIVALPROEX SODIUM [Concomitant]
     Active Substance: DIVALPROEX SODIUM
  4. GABAPENTIN [Concomitant]
     Active Substance: GABAPENTIN

REACTIONS (9)
  - Polydipsia [None]
  - Hyponatraemia [None]
  - Hypophagia [None]
  - Dehydration [None]
  - Urinary tract infection [None]
  - Bacterial infection [None]
  - Urine output increased [None]
  - Inappropriate antidiuretic hormone secretion [None]
  - Device related infection [None]

NARRATIVE: CASE EVENT DATE: 20220728
